FAERS Safety Report 9106590 (Version 1)
Quarter: 2013Q1

REPORT INFORMATION
  Report Type: Spontaneous
  Country: MA (occurrence: MA)
  Receive Date: 20130221
  Receipt Date: 20130221
  Transmission Date: 20140127
  Serious: Yes (Other)
  Sender: FDA-Public Use
  Company Number: PHHY2013MA015342

PATIENT
  Age: 37 Year
  Sex: Female

DRUGS (2)
  1. IMATINIB [Suspect]
     Indication: GASTROINTESTINAL STROMAL TUMOUR
     Dosage: 400 MG, DAILY
  2. MIXOBAR [Concomitant]
     Dosage: THREE APPLICATIONS OF 50 ?G

REACTIONS (14)
  - Gastrointestinal stromal tumour [Unknown]
  - Neoplasm recurrence [Unknown]
  - Abortion spontaneous [Unknown]
  - Abdominal mass [Unknown]
  - Amenorrhoea [Unknown]
  - Induration [Unknown]
  - Cervix disorder [Unknown]
  - Fibrosis [Unknown]
  - Pelvic pain [Unknown]
  - Dyspepsia [Unknown]
  - Nausea [Unknown]
  - Vomiting [Unknown]
  - Abdominal distension [Unknown]
  - Exposure during pregnancy [Unknown]
